FAERS Safety Report 18424937 (Version 5)
Quarter: 2021Q3

REPORT INFORMATION
  Report Type: Report from Study
  Country: DE (occurrence: DE)
  Receive Date: 20201026
  Receipt Date: 20210826
  Transmission Date: 20211014
  Serious: Yes (Hospitalization, Other)
  Sender: FDA-Public Use
  Company Number: DE-SHIRE-DE202034206

PATIENT
  Age: 50 Year
  Sex: Male

DRUGS (66)
  1. TEDUGLUTIDE [Suspect]
     Active Substance: TEDUGLUTIDE
     Dosage: 3.8 MILLIGRAM (TED DAILY DOSES 0.0400 MG/KG, TED DOSES PER WEEK 7)
     Route: 065
     Dates: start: 201904, end: 20190822
  2. TEDUGLUTIDE [Suspect]
     Active Substance: TEDUGLUTIDE
     Dosage: 3.8 MILLIGRAM (TED DAILY DOSES 0.0400 MG/KG, TED DOSES PER WEEK 7)
     Route: 065
     Dates: start: 201904, end: 20190822
  3. TEDUGLUTIDE [Suspect]
     Active Substance: TEDUGLUTIDE
     Dosage: 2.5 MILLIGRAM (TED DAILY DOSES 0.0300 MG/KG, TED DOSES PER WEEK 7)
     Route: 065
     Dates: start: 20191028, end: 20200214
  4. TEDUGLUTIDE [Suspect]
     Active Substance: TEDUGLUTIDE
     Dosage: 3.2 MILLIGRAM (TED DAILY DOSES 0.0300 MG/KG, TED DOSES PER WEEK 4)
     Route: 065
     Dates: start: 20200810, end: 20200819
  5. TEDUGLUTIDE [Suspect]
     Active Substance: TEDUGLUTIDE
     Dosage: 3.2 MILLIGRAM (0.034MG/KG), QD
     Route: 065
     Dates: start: 202010, end: 20210410
  6. TEDUGLUTIDE [Suspect]
     Active Substance: TEDUGLUTIDE
     Dosage: 3.2 MILLIGRAM (0.034MG/KG), 6 DOSES PER WEEK
     Route: 065
     Dates: start: 20210412
  7. TEDUGLUTIDE [Suspect]
     Active Substance: TEDUGLUTIDE
     Dosage: 3.2 MILLIGRAM (0.034MG/KG), 6 DOSES PER WEEK
     Route: 065
     Dates: start: 20210412
  8. SELENASE [Concomitant]
     Indication: SELENIUM DEFICIENCY
  9. KALINOR RETARD P [Concomitant]
     Active Substance: POTASSIUM CHLORIDE
     Indication: PRODUCT USED FOR UNKNOWN INDICATION
  10. UNACID [Concomitant]
     Indication: INFECTION
     Dosage: 750 MILLIGRAM, BID
     Route: 048
     Dates: start: 20210205, end: 20210209
  11. TEDUGLUTIDE [Suspect]
     Active Substance: TEDUGLUTIDE
     Dosage: 4.0 MILLIGRAM (TED DAILY DOSES 0.0500 MG/KG, TED DOSES PER WEEK 7)
     Route: 065
     Dates: start: 20190311
  12. TEDUGLUTIDE [Suspect]
     Active Substance: TEDUGLUTIDE
     Dosage: 2.0 MILLIGRAM (TED DAILY DOSES 0.2700 MG/KG, TED DOSES PER WEEK 7)
     Route: 065
     Dates: start: 20190830, end: 20191014
  13. TEDUGLUTIDE [Suspect]
     Active Substance: TEDUGLUTIDE
     Dosage: 2.0 MILLIGRAM (TED DAILY DOSES 0.2700 MG/KG, TED DOSES PER WEEK 7)
     Route: 065
     Dates: start: 20190830, end: 20191014
  14. TEDUGLUTIDE [Suspect]
     Active Substance: TEDUGLUTIDE
     Dosage: 2.5 MILLIGRAM (TED DAILY DOSES 0.0300 MG/KG, TED DOSES PER WEEK 7)
     Route: 065
     Dates: start: 20191028, end: 20200214
  15. TEDUGLUTIDE [Suspect]
     Active Substance: TEDUGLUTIDE
     Dosage: 3.2 MILLIGRAM (TED DAILY DOSES 0.0300 MG/KG, TED DOSES PER WEEK 4)
     Route: 065
     Dates: start: 20200810, end: 20200819
  16. TEDUGLUTIDE [Suspect]
     Active Substance: TEDUGLUTIDE
     Dosage: 3.2 (TED DAILY DOSES 0.0300 MG/KG, TED DOSES PER WEEK 7)
     Route: 065
     Dates: start: 202010
  17. TEDUGLUTIDE [Suspect]
     Active Substance: TEDUGLUTIDE
     Dosage: 3.5 MILLIGRAM (0..3MG/KG), QD
     Route: 065
     Dates: start: 20191028, end: 20200214
  18. IBUPROFEN. [Concomitant]
     Active Substance: IBUPROFEN
     Indication: ARTHRALGIA
  19. PANTOZOL [Concomitant]
     Active Substance: PANTOPRAZOLE SODIUM
     Indication: PRODUCT USED FOR UNKNOWN INDICATION
  20. TRAMAL [Concomitant]
     Active Substance: TRAMADOL
     Dosage: 15 DROPS
     Route: 048
     Dates: start: 20201102
  21. TEDUGLUTIDE [Suspect]
     Active Substance: TEDUGLUTIDE
     Indication: SHORT-BOWEL SYNDROME
     Dosage: 4.2 MILLIGRAM (TED DAILY DOSE 0.0500 MG/KG, TED DOSES PER WEEK 7)
     Route: 065
     Dates: start: 20190111, end: 20190310
  22. TEDUGLUTIDE [Suspect]
     Active Substance: TEDUGLUTIDE
     Dosage: 4.0 MILLIGRAM (TED DAILY DOSES 0.0500 MG/KG, TED DOSES PER WEEK 7)
     Route: 065
     Dates: start: 20190311
  23. TEDUGLUTIDE [Suspect]
     Active Substance: TEDUGLUTIDE
     Dosage: 2.5 MILLIGRAM (TED DAILY DOSES 0.2700 MG/KG, TED DOSES PER WEEK 7)
     Route: 065
     Dates: start: 20191015, end: 20191027
  24. TEDUGLUTIDE [Suspect]
     Active Substance: TEDUGLUTIDE
     Dosage: 3.2 MILLIGRAM (TED DAILY DOSES 0.0300 MG/KG, TED DOSES PER WEEK 7)
     Route: 065
     Dates: start: 20200218
  25. TEDUGLUTIDE [Suspect]
     Active Substance: TEDUGLUTIDE
     Dosage: 2.6 MILLIGRAM (TED DAILY DOSES 0.0300 MG/KG, TED DOSES PER WEEK 7)
     Route: 065
     Dates: start: 20200820, end: 202010
  26. TEDUGLUTIDE [Suspect]
     Active Substance: TEDUGLUTIDE
     Dosage: 2.6 MILLIGRAM (TED DAILY DOSES 0.0300 MG/KG, TED DOSES PER WEEK 7)
     Route: 065
     Dates: start: 20200820, end: 202010
  27. TEDUGLUTIDE [Suspect]
     Active Substance: TEDUGLUTIDE
     Dosage: 2.6 MILLIGRAM (TED DAILY DOSES 0.0300 MG/KG, TED DOSES PER WEEK 7)
     Route: 065
     Dates: start: 20200820, end: 202010
  28. TEDUGLUTIDE [Suspect]
     Active Substance: TEDUGLUTIDE
     Dosage: 3.2 (TED DAILY DOSES 0.0300 MG/KG, TED DOSES PER WEEK 7)
     Route: 065
     Dates: start: 202010
  29. TEDUGLUTIDE [Suspect]
     Active Substance: TEDUGLUTIDE
     Dosage: 3.2 MILLIGRAM (0.034MG/KG), QD
     Route: 065
     Dates: start: 202010, end: 20210410
  30. TEDUGLUTIDE [Suspect]
     Active Substance: TEDUGLUTIDE
     Dosage: 4.0 MILLIGRAM (TED DAILY DOSES 0.0500 MG/KG, TED DOSES PER WEEK 7)
     Route: 065
     Dates: start: 20190311
  31. TEDUGLUTIDE [Suspect]
     Active Substance: TEDUGLUTIDE
     Dosage: 4.0 MILLIGRAM (TED DAILY DOSES 0.0500 MG/KG, TED DOSES PER WEEK 7)
     Route: 065
     Dates: start: 20190311
  32. TEDUGLUTIDE [Suspect]
     Active Substance: TEDUGLUTIDE
     Dosage: 2.5 MILLIGRAM (TED DAILY DOSES 0.2700 MG/KG, TED DOSES PER WEEK 7)
     Route: 065
     Dates: start: 20191015, end: 20191027
  33. TEDUGLUTIDE [Suspect]
     Active Substance: TEDUGLUTIDE
     Dosage: 3.2 MILLIGRAM (TED DAILY DOSES 0.0300 MG/KG, TED DOSES PER WEEK 7)
     Route: 065
     Dates: start: 20200218
  34. TEDUGLUTIDE [Suspect]
     Active Substance: TEDUGLUTIDE
     Dosage: 3.2 MILLIGRAM (0.034MG/KG), QD
     Route: 065
     Dates: start: 202010, end: 20210410
  35. TEDUGLUTIDE [Suspect]
     Active Substance: TEDUGLUTIDE
     Dosage: 3.2 MILLIGRAM (0.034MG/KG), 6 DOSES PER WEEK
     Route: 065
     Dates: start: 20210412
  36. TRAMAL [Concomitant]
     Active Substance: TRAMADOL
     Indication: FLANK PAIN
     Dosage: UNK UNK, TID
     Route: 048
     Dates: start: 20201001, end: 20201101
  37. TEDUGLUTIDE [Suspect]
     Active Substance: TEDUGLUTIDE
     Dosage: 3.8 MILLIGRAM (TED DAILY DOSES 0.0400 MG/KG, TED DOSES PER WEEK 7)
     Route: 065
     Dates: start: 201904, end: 20190822
  38. TEDUGLUTIDE [Suspect]
     Active Substance: TEDUGLUTIDE
     Dosage: 3.8 MILLIGRAM (TED DAILY DOSES 0.0400 MG/KG, TED DOSES PER WEEK 7)
     Route: 065
     Dates: start: 201904, end: 20190822
  39. TEDUGLUTIDE [Suspect]
     Active Substance: TEDUGLUTIDE
     Dosage: 3.8 MILLIGRAM (TED DAILY DOSES 0.0400 MG/KG, TED DOSES PER WEEK 4)
     Route: 065
     Dates: start: 20190823, end: 20190829
  40. TEDUGLUTIDE [Suspect]
     Active Substance: TEDUGLUTIDE
     Dosage: 3.8 MILLIGRAM (TED DAILY DOSES 0.0400 MG/KG, TED DOSES PER WEEK 4)
     Route: 065
     Dates: start: 20190823, end: 20190829
  41. TEDUGLUTIDE [Suspect]
     Active Substance: TEDUGLUTIDE
     Dosage: 2.0 MILLIGRAM (TED DAILY DOSES 0.2700 MG/KG, TED DOSES PER WEEK 7)
     Route: 065
     Dates: start: 20190830, end: 20191014
  42. TEDUGLUTIDE [Suspect]
     Active Substance: TEDUGLUTIDE
     Dosage: 2.5 MILLIGRAM (TED DAILY DOSES 0.0300 MG/KG, TED DOSES PER WEEK 7)
     Route: 065
     Dates: start: 20191028, end: 20200214
  43. TEDUGLUTIDE [Suspect]
     Active Substance: TEDUGLUTIDE
     Dosage: 2.5 MILLIGRAM (TED DAILY DOSES 0.0300 MG/KG, TED DOSES PER WEEK 7)
     Route: 065
     Dates: start: 20191028, end: 20200214
  44. TEDUGLUTIDE [Suspect]
     Active Substance: TEDUGLUTIDE
     Dosage: 3.2 MILLIGRAM (TED DAILY DOSES 0.0300 MG/KG, TED DOSES PER WEEK 7)
     Route: 065
     Dates: start: 20200218
  45. TEDUGLUTIDE [Suspect]
     Active Substance: TEDUGLUTIDE
     Dosage: 3.2 MILLIGRAM (TED DAILY DOSES 0.0300 MG/KG, TED DOSES PER WEEK 4)
     Route: 065
     Dates: start: 20200810, end: 20200819
  46. TEDUGLUTIDE [Suspect]
     Active Substance: TEDUGLUTIDE
     Dosage: 3.2 MILLIGRAM (TED DAILY DOSES 0.0300 MG/KG, TED DOSES PER WEEK 4)
     Route: 065
     Dates: start: 20200810, end: 20200819
  47. TEDUGLUTIDE [Suspect]
     Active Substance: TEDUGLUTIDE
     Dosage: 3.2 (TED DAILY DOSES 0.0300 MG/KG, TED DOSES PER WEEK 7)
     Route: 065
     Dates: start: 202010
  48. TEDUGLUTIDE [Suspect]
     Active Substance: TEDUGLUTIDE
     Dosage: 3.2 MILLIGRAM (0.034MG/KG), 6 DOSES PER WEEK
     Route: 065
     Dates: start: 20210412
  49. TEDUGLUTIDE [Suspect]
     Active Substance: TEDUGLUTIDE
     Dosage: 3.5 MILLIGRAM (0..3MG/KG), QD
     Route: 065
     Dates: start: 20191028, end: 20200214
  50. TRAMAL [Concomitant]
     Active Substance: TRAMADOL
     Dosage: UNK
     Route: 048
     Dates: start: 20201102
  51. CEPHALEXIN. [Concomitant]
     Active Substance: CEPHALEXIN
     Indication: DEVICE RELATED INFECTION
     Dosage: 1000 MILLIGRAM, QD
     Route: 048
     Dates: start: 20210107, end: 20210115
  52. TEDUGLUTIDE [Suspect]
     Active Substance: TEDUGLUTIDE
     Indication: SHORT-BOWEL SYNDROME
     Dosage: 4.2 MILLIGRAM (TED DAILY DOSE 0.0500 MG/KG, TED DOSES PER WEEK 7)
     Route: 065
     Dates: start: 20190111, end: 20190310
  53. TEDUGLUTIDE [Suspect]
     Active Substance: TEDUGLUTIDE
     Indication: SHORT-BOWEL SYNDROME
     Dosage: 4.2 MILLIGRAM (TED DAILY DOSE 0.0500 MG/KG, TED DOSES PER WEEK 7)
     Route: 065
     Dates: start: 20190111, end: 20190310
  54. TEDUGLUTIDE [Suspect]
     Active Substance: TEDUGLUTIDE
     Dosage: 2.0 MILLIGRAM (TED DAILY DOSES 0.2700 MG/KG, TED DOSES PER WEEK 7)
     Route: 065
     Dates: start: 20190830, end: 20191014
  55. TEDUGLUTIDE [Suspect]
     Active Substance: TEDUGLUTIDE
     Dosage: 2.5 MILLIGRAM (TED DAILY DOSES 0.2700 MG/KG, TED DOSES PER WEEK 7)
     Route: 065
     Dates: start: 20191015, end: 20191027
  56. TEDUGLUTIDE [Suspect]
     Active Substance: TEDUGLUTIDE
     Dosage: 2.6 MILLIGRAM (TED DAILY DOSES 0.0300 MG/KG, TED DOSES PER WEEK 7)
     Route: 065
     Dates: start: 20200820, end: 202010
  57. TEDUGLUTIDE [Suspect]
     Active Substance: TEDUGLUTIDE
     Dosage: 3.2 MILLIGRAM (0.034MG/KG), QD
     Route: 065
     Dates: start: 202010, end: 20210410
  58. TEDUGLUTIDE [Suspect]
     Active Substance: TEDUGLUTIDE
     Dosage: 3.5 MILLIGRAM (0..3MG/KG), QD
     Route: 065
     Dates: start: 20191028, end: 20200214
  59. TEDUGLUTIDE [Suspect]
     Active Substance: TEDUGLUTIDE
     Indication: SHORT-BOWEL SYNDROME
     Dosage: 4.2 MILLIGRAM (TED DAILY DOSE 0.0500 MG/KG, TED DOSES PER WEEK 7)
     Route: 065
     Dates: start: 20190111, end: 20190310
  60. TEDUGLUTIDE [Suspect]
     Active Substance: TEDUGLUTIDE
     Dosage: 3.8 MILLIGRAM (TED DAILY DOSES 0.0400 MG/KG, TED DOSES PER WEEK 4)
     Route: 065
     Dates: start: 20190823, end: 20190829
  61. TEDUGLUTIDE [Suspect]
     Active Substance: TEDUGLUTIDE
     Dosage: 3.8 MILLIGRAM (TED DAILY DOSES 0.0400 MG/KG, TED DOSES PER WEEK 4)
     Route: 065
     Dates: start: 20190823, end: 20190829
  62. TEDUGLUTIDE [Suspect]
     Active Substance: TEDUGLUTIDE
     Dosage: 2.5 MILLIGRAM (TED DAILY DOSES 0.2700 MG/KG, TED DOSES PER WEEK 7)
     Route: 065
     Dates: start: 20191015, end: 20191027
  63. TEDUGLUTIDE [Suspect]
     Active Substance: TEDUGLUTIDE
     Dosage: 3.2 MILLIGRAM (TED DAILY DOSES 0.0300 MG/KG, TED DOSES PER WEEK 7)
     Route: 065
     Dates: start: 20200218
  64. TEDUGLUTIDE [Suspect]
     Active Substance: TEDUGLUTIDE
     Dosage: 3.2 (TED DAILY DOSES 0.0300 MG/KG, TED DOSES PER WEEK 7)
     Route: 065
     Dates: start: 202010
  65. TEDUGLUTIDE [Suspect]
     Active Substance: TEDUGLUTIDE
     Dosage: 3.5 MILLIGRAM (0..3MG/KG), QD
     Route: 065
     Dates: start: 20191028, end: 20200214
  66. NEUROBION FORTE [Concomitant]
     Active Substance: CYANOCOBALAMIN\PYRIDOXINE HYDROCHLORIDE\THIAMINE DISULFIDE
     Indication: VITAMIN B6 DEFICIENCY
     Dosage: 82.27 MILLIGRAM, QD
     Route: 048
     Dates: start: 20210308

REACTIONS (2)
  - Urinary tract disorder [Recovered/Resolved]
  - Ureteric stenosis [Recovered/Resolved]

NARRATIVE: CASE EVENT DATE: 20200902
